FAERS Safety Report 19783550 (Version 16)
Quarter: 2022Q2

REPORT INFORMATION
  Report Type: Spontaneous
  Country: CA (occurrence: CA)
  Receive Date: 20210902
  Receipt Date: 20220614
  Transmission Date: 20220720
  Serious: Yes (Hospitalization, Other)
  Sender: FDA-Public Use
  Company Number: CA-CELLTRION INC.-2021CA011496

PATIENT

DRUGS (31)
  1. INFLECTRA [Suspect]
     Active Substance: INFLIXIMAB-DYYB
     Indication: Colitis ulcerative
     Dosage: 300 MG AT WEEK 0
     Route: 041
     Dates: start: 20180627
  2. INFLECTRA [Suspect]
     Active Substance: INFLIXIMAB-DYYB
     Dosage: 400 MG AT WEEK 2, 6 THEN EVERY 8 WEEKS
     Route: 041
     Dates: start: 20180711
  3. INFLECTRA [Suspect]
     Active Substance: INFLIXIMAB-DYYB
     Dosage: 600 MG EVERY 8 WEEKS
     Route: 041
     Dates: start: 20181113
  4. INFLECTRA [Suspect]
     Active Substance: INFLIXIMAB-DYYB
     Dosage: 400 MG EVERY 4 WEEKS
     Route: 041
     Dates: start: 20190117
  5. INFLECTRA [Suspect]
     Active Substance: INFLIXIMAB-DYYB
     Dosage: 400 MG, 0, 2, 6 WEEKS, THEN EVERY 6 WEEKS (RE-INDUCTION)
     Route: 041
     Dates: start: 20190301
  6. INFLECTRA [Suspect]
     Active Substance: INFLIXIMAB-DYYB
     Dosage: 400 MG EVERY 4 WEEKS
     Route: 041
     Dates: start: 20210716
  7. INFLECTRA [Suspect]
     Active Substance: INFLIXIMAB-DYYB
     Dosage: 400 MG EVERY 4 WEEKS
     Route: 041
     Dates: start: 20210827
  8. INFLECTRA [Suspect]
     Active Substance: INFLIXIMAB-DYYB
     Dosage: 400 MG EVERY 4 WEEKS
     Route: 041
     Dates: start: 20210924
  9. INFLECTRA [Suspect]
     Active Substance: INFLIXIMAB-DYYB
     Dosage: 400 MG EVERY 4 WEEKS
     Route: 041
     Dates: start: 20211022
  10. INFLECTRA [Suspect]
     Active Substance: INFLIXIMAB-DYYB
     Dosage: 600 MG EVERY 4 WEEKS
     Route: 041
     Dates: start: 20211030
  11. INFLECTRA [Suspect]
     Active Substance: INFLIXIMAB-DYYB
     Dosage: 600 MG EVERY 4 WEEKS
     Route: 041
     Dates: start: 20211119
  12. INFLECTRA [Suspect]
     Active Substance: INFLIXIMAB-DYYB
     Dosage: 600 MG EVERY 4 WEEKS
     Route: 041
     Dates: start: 20211216
  13. INFLECTRA [Suspect]
     Active Substance: INFLIXIMAB-DYYB
     Dosage: 600 MG EVERY 4 WEEKS
     Route: 041
     Dates: start: 20220211
  14. INFLECTRA [Suspect]
     Active Substance: INFLIXIMAB-DYYB
     Dosage: 600 MG EVERY 4 WEEKS
     Route: 041
     Dates: start: 20220310
  15. INFLECTRA [Suspect]
     Active Substance: INFLIXIMAB-DYYB
     Dosage: 600 MG EVERY 4 WEEKS
     Route: 041
     Dates: start: 20220405
  16. INFLECTRA [Suspect]
     Active Substance: INFLIXIMAB-DYYB
     Dosage: 600 MG EVERY 4 WEEKS
     Route: 041
     Dates: start: 20220506
  17. INFLECTRA [Suspect]
     Active Substance: INFLIXIMAB-DYYB
     Dosage: 600 MG EVERY 4 WEEKS
     Route: 042
     Dates: start: 20220603
  18. CELEBREX [Concomitant]
     Active Substance: CELECOXIB
     Dosage: 1 DF
     Route: 065
     Dates: start: 2018
  19. BUDESONIDE [Concomitant]
     Active Substance: BUDESONIDE
     Dosage: 9 MG, 1 DF DAILY
     Route: 065
  20. DOXEPIN [Concomitant]
     Active Substance: DOXEPIN
     Dosage: UNK
  21. DOXEPIN [Concomitant]
     Active Substance: DOXEPIN
     Dosage: 25 MG
     Route: 065
  22. LOSARTAN [Concomitant]
     Active Substance: LOSARTAN
     Dosage: UNK
  23. LOSARTAN [Concomitant]
     Active Substance: LOSARTAN
     Dosage: 25 MG
     Route: 065
  24. MESALAMINE [Concomitant]
     Active Substance: MESALAMINE
     Dosage: UNK
  25. MESALAMINE [Concomitant]
     Active Substance: MESALAMINE
     Dosage: 4800 MG, 1X/DAY
     Route: 048
  26. PREDNISONE [Concomitant]
     Active Substance: PREDNISONE
     Dosage: UNK
  27. PREDNISONE [Concomitant]
     Active Substance: PREDNISONE
     Dosage: 20 MG, TO BE TAPERED BY 2.5 MG WEEKLY
     Route: 065
  28. PREDNISONE [Concomitant]
     Active Substance: PREDNISONE
     Dosage: 20 MG, ONCE EVERY 2 DAYS (TO BE TAPERED BY 2.5 MG WEEKLY)
     Route: 065
  29. MESALAMINE [Concomitant]
     Active Substance: MESALAMINE
     Dosage: UNK
  30. MESALAMINE [Concomitant]
     Active Substance: MESALAMINE
     Dosage: 1000 MG, AT BEDTIME
     Route: 054
  31. VENLAFAXINE [Concomitant]
     Active Substance: VENLAFAXINE HYDROCHLORIDE
     Dosage: 75 MG
     Route: 065

REACTIONS (22)
  - Condition aggravated [Recovered/Resolved]
  - Melaena [Not Recovered/Not Resolved]
  - Bronchitis [Recovering/Resolving]
  - Faecal calprotectin increased [Unknown]
  - Staphylococcal pharyngitis [Unknown]
  - Cataract [Unknown]
  - Drug level decreased [Unknown]
  - Drug ineffective [Unknown]
  - Off label use [Unknown]
  - Off label use [Unknown]
  - Intentional product use issue [Unknown]
  - Inappropriate schedule of product administration [Unknown]
  - Asthenia [Not Recovered/Not Resolved]
  - Vomiting [Recovered/Resolved]
  - Malaise [Unknown]
  - Fatigue [Not Recovered/Not Resolved]
  - Haemorrhoids [Recovered/Resolved]
  - Constipation [Not Recovered/Not Resolved]
  - Anorectal discomfort [Not Recovered/Not Resolved]
  - Secretion discharge [Unknown]
  - Bowel movement irregularity [Unknown]
  - Constipation [Unknown]

NARRATIVE: CASE EVENT DATE: 20190117
